FAERS Safety Report 8373357-7 (Version None)
Quarter: 2012Q2

REPORT INFORMATION
  Report Type: 
  Country: None (occurrence: None)
  Receive Date: 20120521
  Receipt Date: 20120514
  Transmission Date: 20120825
  Serious: Yes (Other)
  Sender: FDA-Public Use
  Company Number: US-BAYER-2012-018052

PATIENT
  Age: 28 Year
  Sex: Female
  Weight: 81.633 kg

DRUGS (5)
  1. LEVAQUIN [Concomitant]
     Dosage: UNK
     Dates: start: 20110301
  2. YASMIN [Suspect]
     Indication: POLYCYSTIC OVARIES
     Dosage: UNK
     Dates: start: 20110401, end: 20110601
  3. METFORMIN HCL [Concomitant]
     Indication: POLYCYSTIC OVARIES
     Dosage: UNK
     Dates: start: 20100501
  4. DROSPIRENONE AND ETHINYL ESTRADIOL [Suspect]
     Indication: POLYCYSTIC OVARIES
     Dosage: UNK
     Dates: start: 20110401, end: 20110601
  5. BIOTIN [Concomitant]

REACTIONS (1)
  - DEEP VEIN THROMBOSIS [None]
